FAERS Safety Report 7820064-2 (Version None)
Quarter: 2011Q4

REPORT INFORMATION
  Report Type: 
  Country: None (occurrence: None)
  Receive Date: 20111018
  Receipt Date: 20111014
  Transmission Date: 20120403
  Serious: No
  Sender: FDA-Public Use
  Company Number: PHEH2011US06940

PATIENT
  Age: 49 Year
  Sex: Female

DRUGS (5)
  1. CALCIUM CARBONATE [Concomitant]
  2. TASIGNA [Suspect]
     Indication: CHRONIC MYELOID LEUKAEMIA
     Dosage: 300 MG, BID
     Route: 048
     Dates: start: 20110308
  3. SYNTHROID [Concomitant]
  4. PRILOSEC [Concomitant]
  5. MULTI-VITAMIN [Concomitant]

REACTIONS (1)
  - MUSCLE SPASMS [None]
